FAERS Safety Report 18576837 (Version 2)
Quarter: 2020Q4

REPORT INFORMATION
  Report Type: Report from Study
  Country: DE (occurrence: DE)
  Receive Date: 20201203
  Receipt Date: 20201207
  Transmission Date: 20210114
  Serious: Yes (Hospitalization)
  Sender: FDA-Public Use
  Company Number: DE-EXELIXIS-XL18420034754

PATIENT
  Sex: Female
  Weight: 87 kg

DRUGS (15)
  1. NYSTATIN. [Concomitant]
     Active Substance: NYSTATIN
     Indication: DRY SKIN
  2. JANUVIA [Concomitant]
     Active Substance: SITAGLIPTIN PHOSPHATE
  3. FRAGMIN P [Concomitant]
     Active Substance: DALTEPARIN SODIUM
     Indication: PROPHYLAXIS
  4. OTOBACID [Concomitant]
     Indication: EAR DISORDER
  5. XL184 [Suspect]
     Active Substance: CABOZANTINIB
     Indication: TRANSITIONAL CELL CARCINOMA
     Dosage: 60 MG, QD
     Dates: start: 20200909, end: 20201104
  6. AMLODIPIN [Concomitant]
     Active Substance: AMLODIPINE BESYLATE
     Indication: HYPERTENSION
  7. DOMINAL [Concomitant]
     Indication: DEPRESSION
  8. CITALOPRAM [Concomitant]
     Active Substance: CITALOPRAM HYDROBROMIDE
     Indication: DEPRESSION
  9. XL184 [Suspect]
     Active Substance: CABOZANTINIB
     Dosage: 60 MG, QD
  10. ECURAL [Concomitant]
     Active Substance: MOMETASONE
     Indication: DRY SKIN
  11. RAMIPRIL COMP [Concomitant]
     Active Substance: HYDROCHLOROTHIAZIDE\RAMIPRIL
     Indication: HYPERTENSION
  12. FLUPHENAZINE D [Concomitant]
     Indication: DEPRESSION
  13. HALOPERIDOL. [Concomitant]
     Active Substance: HALOPERIDOL
     Indication: DEPRESSION
  14. BALDRIPARAN [Concomitant]
     Active Substance: VALERIAN
  15. LOPERAMIDE [Concomitant]
     Active Substance: LOPERAMIDE
     Indication: DIARRHOEA

REACTIONS (3)
  - Urinary tract infection [Recovered/Resolved]
  - Malaise [Recovered/Resolved]
  - Spinal fracture [Not Recovered/Not Resolved]

NARRATIVE: CASE EVENT DATE: 20201102
